FAERS Safety Report 12890387 (Version 3)
Quarter: 2016Q4

REPORT INFORMATION
  Report Type: Spontaneous
  Country: IT (occurrence: IT)
  Receive Date: 20161027
  Receipt Date: 20161207
  Transmission Date: 20170207
  Serious: Yes (Other)
  Sender: FDA-Public Use
  Company Number: IT-TEVA-707111ISR

PATIENT
  Age: 80 Year
  Sex: Male
  Weight: 91 kg

DRUGS (4)
  1. CONGESCOR [Suspect]
     Active Substance: BISOPROLOL
     Indication: CARDIAC FAILURE
     Dosage: 2.5 MILLIGRAM DAILY; LAST DOSE: 11-JUL-2016
     Route: 048
     Dates: start: 20090930
  2. PANTOPRAZOLE GASTRO-RESISTANT TABLET [Suspect]
     Active Substance: PANTOPRAZOLE SODIUM
     Indication: OESOPHAGITIS
     Dosage: 40 MILLIGRAM DAILY; LAST DOSE: 11-JUL-2016
     Route: 048
     Dates: start: 20150909
  3. MIRTAZAPINA [Suspect]
     Active Substance: MIRTAZAPINE
     Indication: DECREASED APPETITE
     Dosage: .5 DOSAGE FORMS DAILY;
     Route: 048
     Dates: start: 20160404, end: 20160709
  4. CARDIOASPIRIN GASTRO-RESISTANT TABLET [Concomitant]
     Dosage: 100 MILLIGRAM DAILY;
     Route: 048
     Dates: start: 20090909, end: 20160711

REACTIONS (8)
  - Hypotension [Recovering/Resolving]
  - Hyperhidrosis [Recovering/Resolving]
  - Dysstasia [Unknown]
  - Abnormal weight gain [Recovering/Resolving]
  - Dry mouth [Recovering/Resolving]
  - Arthralgia [Recovering/Resolving]
  - Somnolence [Recovering/Resolving]
  - Myalgia [Unknown]

NARRATIVE: CASE EVENT DATE: 20160621
